FAERS Safety Report 17151950 (Version 5)
Quarter: 2020Q3

REPORT INFORMATION
  Report Type: Spontaneous
  Country: JP (occurrence: JP)
  Receive Date: 20191213
  Receipt Date: 20200821
  Transmission Date: 20201102
  Serious: Yes (Life-Threatening, Hospitalization, Other)
  Sender: FDA-Public Use
  Company Number: JP-PFIZER INC-2019534092

PATIENT
  Age: 21 Year
  Sex: Female

DRUGS (6)
  1. BESPONSA [Suspect]
     Active Substance: INOTUZUMAB OZOGAMICIN
     Indication: PRODUCT USED FOR UNKNOWN INDICATION
     Dosage: UNK
  2. ACETAMINOPHEN. [Concomitant]
     Active Substance: ACETAMINOPHEN
     Dosage: UNK
     Dates: start: 20190111
  3. LOXONIN [Concomitant]
     Active Substance: LOXOPROFEN SODIUM
     Dosage: UNK
     Dates: start: 20190111
  4. PROGRAF [Concomitant]
     Active Substance: TACROLIMUS
     Dosage: UNK
  5. BLINCYTO [Suspect]
     Active Substance: BLINATUMOMAB
     Indication: ACUTE LYMPHOCYTIC LEUKAEMIA REFRACTORY
     Dosage: 9 UG, 1X/DAY
     Route: 042
     Dates: start: 20190109, end: 20190320
  6. BLINCYTO [Suspect]
     Active Substance: BLINATUMOMAB
     Dosage: UNK
     Route: 042
     Dates: start: 20191015

REACTIONS (2)
  - Venoocclusive disease [Recovered/Resolved]
  - Graft versus host disease [Recovering/Resolving]

NARRATIVE: CASE EVENT DATE: 201904
